FAERS Safety Report 21994913 (Version 4)
Quarter: 2023Q4

REPORT INFORMATION
  Report Type: Spontaneous
  Country: US (occurrence: US)
  Receive Date: 20230215
  Receipt Date: 20231204
  Transmission Date: 20240109
  Serious: No
  Sender: FDA-Public Use
  Company Number: US-PFIZER INC-PV202300028293

PATIENT
  Age: 67 Year
  Sex: Female

DRUGS (39)
  1. DOCETAXEL [Suspect]
     Active Substance: DOCETAXEL\DOCETAXEL ANHYDROUS
     Indication: HER2 positive breast cancer
     Dosage: UNK, SINGLE (CYCLE 1)
     Dates: start: 20180507, end: 20180507
  2. DOCETAXEL [Suspect]
     Active Substance: DOCETAXEL\DOCETAXEL ANHYDROUS
     Dosage: UNK, SINGLE (CYCLE 2)
     Dates: start: 20180529, end: 20180529
  3. DOCETAXEL [Suspect]
     Active Substance: DOCETAXEL\DOCETAXEL ANHYDROUS
     Dosage: UNK, SINGLE (CYCLE 3)
     Dates: start: 20180618, end: 20180618
  4. DOCETAXEL [Suspect]
     Active Substance: DOCETAXEL\DOCETAXEL ANHYDROUS
     Dosage: UNK, SINGLE (CYCLE 4)
     Dates: start: 20180709, end: 20180709
  5. DOCETAXEL [Suspect]
     Active Substance: DOCETAXEL\DOCETAXEL ANHYDROUS
     Dosage: UNK, SINGLE (CYCLE 5)
     Dates: start: 20180730, end: 20180730
  6. DOCETAXEL [Suspect]
     Active Substance: DOCETAXEL\DOCETAXEL ANHYDROUS
     Dosage: UNK, SINGLE (CYCLE 6)
     Dates: start: 20180820, end: 20180820
  7. DOCETAXEL [Suspect]
     Active Substance: DOCETAXEL\DOCETAXEL ANHYDROUS
     Dosage: UNK, SINGLE (CYCLE 7)
     Dates: start: 20180910, end: 20180910
  8. DOCETAXEL [Suspect]
     Active Substance: DOCETAXEL\DOCETAXEL ANHYDROUS
     Dosage: UNK, SINGLE (CYCLE 8)
     Dates: start: 20181001, end: 20181001
  9. DOCETAXEL [Suspect]
     Active Substance: DOCETAXEL\DOCETAXEL ANHYDROUS
     Dosage: UNK, SINGLE (CYCLE 9)
     Dates: start: 20181022, end: 20181022
  10. DOCETAXEL [Suspect]
     Active Substance: DOCETAXEL\DOCETAXEL ANHYDROUS
     Indication: HER2 positive breast cancer
     Dosage: UNK, SINGLE (CYCLE 1)
     Dates: start: 20180507, end: 20180507
  11. DOCETAXEL [Suspect]
     Active Substance: DOCETAXEL\DOCETAXEL ANHYDROUS
     Dosage: UNK, SINGLE (CYCLE 2)
     Dates: start: 20180529, end: 20180529
  12. DOCETAXEL [Suspect]
     Active Substance: DOCETAXEL\DOCETAXEL ANHYDROUS
     Dosage: UNK, SINGLE (CYCLE 3)
     Dates: start: 20180618, end: 20180618
  13. DOCETAXEL [Suspect]
     Active Substance: DOCETAXEL\DOCETAXEL ANHYDROUS
     Dosage: UNK, SINGLE (CYCLE 4)
     Dates: start: 20180709, end: 20180709
  14. DOCETAXEL [Suspect]
     Active Substance: DOCETAXEL\DOCETAXEL ANHYDROUS
     Dosage: UNK, SINGLE (CYCLE 5)
     Dates: start: 20180730, end: 20180730
  15. DOCETAXEL [Suspect]
     Active Substance: DOCETAXEL\DOCETAXEL ANHYDROUS
     Dosage: UNK, SINGLE (CYCLE 6)
     Dates: start: 20180820, end: 20180820
  16. DOCETAXEL [Suspect]
     Active Substance: DOCETAXEL\DOCETAXEL ANHYDROUS
     Dosage: UNK, SINGLE (CYCLE 7)
     Dates: start: 20180910, end: 20180910
  17. DOCETAXEL [Suspect]
     Active Substance: DOCETAXEL\DOCETAXEL ANHYDROUS
     Dosage: UNK, SINGLE (CYCLE 8)
     Dates: start: 20181001, end: 20181001
  18. DOCETAXEL [Suspect]
     Active Substance: DOCETAXEL\DOCETAXEL ANHYDROUS
     Dosage: UNK, SINGLE (CYCLE 9)
     Dates: start: 20181022, end: 20181022
  19. DOCETAXEL [Suspect]
     Active Substance: DOCETAXEL\DOCETAXEL ANHYDROUS
     Indication: HER2 positive breast cancer
     Dosage: UNK, SINGLE (CYCLE 1)
     Dates: start: 20180507, end: 20180507
  20. DOCETAXEL [Suspect]
     Active Substance: DOCETAXEL\DOCETAXEL ANHYDROUS
     Dosage: UNK, SINGLE (CYCLE 2)
     Dates: start: 20180529, end: 20180529
  21. DOCETAXEL [Suspect]
     Active Substance: DOCETAXEL\DOCETAXEL ANHYDROUS
     Dosage: UNK, SINGLE (CYCLE 3)
     Dates: start: 20180618, end: 20180618
  22. DOCETAXEL [Suspect]
     Active Substance: DOCETAXEL\DOCETAXEL ANHYDROUS
     Dosage: UNK, SINGLE (CYCLE 4)
     Dates: start: 20180709, end: 20180709
  23. DOCETAXEL [Suspect]
     Active Substance: DOCETAXEL\DOCETAXEL ANHYDROUS
     Dosage: UNK, SINGLE (CYCLE 5)
     Dates: start: 20180730, end: 20180730
  24. DOCETAXEL [Suspect]
     Active Substance: DOCETAXEL\DOCETAXEL ANHYDROUS
     Dosage: UNK, SINGLE (CYCLE 6)
     Dates: start: 20180820, end: 20180820
  25. DOCETAXEL [Suspect]
     Active Substance: DOCETAXEL\DOCETAXEL ANHYDROUS
     Dosage: UNK, SINGLE (CYCLE 7)
     Dates: start: 20180910, end: 20180910
  26. DOCETAXEL [Suspect]
     Active Substance: DOCETAXEL\DOCETAXEL ANHYDROUS
     Dosage: UNK, SINGLE (CYCLE 8)
     Dates: start: 20181001, end: 20181001
  27. DOCETAXEL [Suspect]
     Active Substance: DOCETAXEL\DOCETAXEL ANHYDROUS
     Dosage: UNK, SINGLE (CYCLE 9)
     Dates: start: 20181022, end: 20181022
  28. DOCETAXEL [Suspect]
     Active Substance: DOCETAXEL\DOCETAXEL ANHYDROUS
     Indication: HER2 positive breast cancer
     Dosage: UNK, SINGLE (CYCLE 1)
     Dates: start: 20180507, end: 20180507
  29. DOCETAXEL [Suspect]
     Active Substance: DOCETAXEL\DOCETAXEL ANHYDROUS
     Dosage: UNK, SINGLE (CYCLE 2)
     Dates: start: 20180529, end: 20180529
  30. DOCETAXEL [Suspect]
     Active Substance: DOCETAXEL\DOCETAXEL ANHYDROUS
     Dosage: UNK, SINGLE (CYCLE 3)
     Dates: start: 20180618, end: 20180618
  31. DOCETAXEL [Suspect]
     Active Substance: DOCETAXEL\DOCETAXEL ANHYDROUS
     Dosage: UNK, SINGLE (CYCLE 4)
     Dates: start: 20180709, end: 20180709
  32. DOCETAXEL [Suspect]
     Active Substance: DOCETAXEL\DOCETAXEL ANHYDROUS
     Dosage: UNK, SINGLE (CYCLE 5)
     Dates: start: 20180730, end: 20180730
  33. DOCETAXEL [Suspect]
     Active Substance: DOCETAXEL\DOCETAXEL ANHYDROUS
     Dosage: UNK, SINGLE (CYCLE 6)
     Dates: start: 20180820, end: 20180820
  34. DOCETAXEL [Suspect]
     Active Substance: DOCETAXEL\DOCETAXEL ANHYDROUS
     Dosage: UNK, SINGLE (CYCLE 7)
     Dates: start: 20180910, end: 20180910
  35. DOCETAXEL [Suspect]
     Active Substance: DOCETAXEL\DOCETAXEL ANHYDROUS
     Dosage: UNK, SINGLE (CYCLE 8)
     Dates: start: 20181001, end: 20181001
  36. DOCETAXEL [Suspect]
     Active Substance: DOCETAXEL\DOCETAXEL ANHYDROUS
     Dosage: UNK, SINGLE (CYCLE 9)
     Dates: start: 20181022, end: 20181022
  37. PERJETA [Concomitant]
     Active Substance: PERTUZUMAB
     Indication: Chemotherapy
     Dosage: UNK
  38. HERCEPTIN [Concomitant]
     Active Substance: TRASTUZUMAB
     Indication: Chemotherapy
     Dosage: UNK
  39. TRASTUZUMAB [Concomitant]
     Active Substance: TRASTUZUMAB
     Indication: Chemotherapy
     Dosage: UNK

REACTIONS (2)
  - Lacrimation increased [Not Recovered/Not Resolved]
  - Lacrimal structure injury [Not Recovered/Not Resolved]

NARRATIVE: CASE EVENT DATE: 20180101
